FAERS Safety Report 18753816 (Version 1)
Quarter: 2021Q1

REPORT INFORMATION
  Report Type: Spontaneous
  Country: US (occurrence: US)
  Receive Date: 20210119
  Receipt Date: 20210119
  Transmission Date: 20210419
  Serious: Yes (Death, Life-Threatening, Hospitalization, Other)
  Sender: FDA-Public Use
  Company Number: US-AUROBINDO-AUR-APL-2021-001682

PATIENT
  Age: 76 Year
  Sex: Female

DRUGS (1)
  1. ACETAMINOPHEN+DIPHENHYDRAMINE [Suspect]
     Active Substance: ACETAMINOPHEN\DIPHENHYDRAMINE HYDROCHLORIDE
     Indication: PRODUCT USED FOR UNKNOWN INDICATION
     Dosage: UNK UNK, ONCE A DAY (2 AND 6 TABLETS OF 500 MG ACETAMINOPHEN/DIPHENHYDRAMINE COMBINATION DAILY)
     Route: 065

REACTIONS (3)
  - Renal impairment [Fatal]
  - Hepatic failure [Fatal]
  - Encephalopathy [Fatal]
